FAERS Safety Report 10033223 (Version 1)
Quarter: 2014Q1

REPORT INFORMATION
  Report Type: Spontaneous
  Country: US (occurrence: US)
  Receive Date: 20140324
  Receipt Date: 20140324
  Transmission Date: 20141002
  Serious: Yes (Other)
  Sender: FDA-Public Use
  Company Number: PHHY2014US031216

PATIENT
  Age: 56 Year
  Sex: Female

DRUGS (9)
  1. CARVEDILOL [Suspect]
     Dosage: 6.25 MG, BID
  2. ISOSORBIDE DINITRATE [Suspect]
     Dosage: 10 MG, TID
  3. LIDOCAINE [Suspect]
     Indication: DISCOMFORT
     Dosage: 20 ML, UNK
     Route: 058
  4. LIDOCAINE [Suspect]
     Indication: LOCAL ANAESTHESIA
     Dosage: 10 ML, UNK
     Route: 058
  5. LIDOCAINE [Suspect]
     Dosage: 30 ML, UNK
     Route: 058
  6. CANDESARTAN [Concomitant]
     Dosage: 16 MG, DAILY
  7. HYDRALAZINE [Concomitant]
     Dosage: 25 MG, TID
  8. MIDAZOLAM [Concomitant]
     Indication: SEDATION
     Dosage: 1 MG, UNK
     Route: 042
  9. FENTANYL [Concomitant]
     Indication: SEDATION
     Dosage: 50 UG, UNK
     Route: 042

REACTIONS (10)
  - Toxicity to various agents [Unknown]
  - Grand mal convulsion [Unknown]
  - Blood pressure abnormal [Unknown]
  - Heart rate abnormal [Unknown]
  - Oxygen saturation abnormal [Unknown]
  - Pulseless electrical activity [Unknown]
  - Pulse absent [Unknown]
  - Metabolic acidosis [Unknown]
  - Respiratory acidosis [Unknown]
  - Drug level increased [Unknown]
